FAERS Safety Report 6510893-X (Version None)
Quarter: 2009Q4

REPORT INFORMATION
  Report Type: 
  Country: None (occurrence: None)
  Receive Date: 20091222
  Receipt Date: 20090120
  Transmission Date: 20100525
  Serious: No
  Sender: FDA-Public Use
  Company Number: US-ASTRAZENECA-2009UW01754

PATIENT
  Sex: Female
  Weight: 60.3 kg

DRUGS (3)
  1. CRESTOR [Suspect]
     Indication: BLOOD CHOLESTEROL INCREASED
     Route: 048
     Dates: start: 20080901
  2. ASPIRIN [Concomitant]
     Indication: PROPHYLAXIS
  3. COLON CLEANSER [Concomitant]
     Indication: CONSTIPATION

REACTIONS (2)
  - CONSTIPATION [None]
  - MALAISE [None]
